FAERS Safety Report 5854474-X (Version None)
Quarter: 2008Q3

REPORT INFORMATION
  Report Type: 
  Country: None (occurrence: None)
  Receive Date: 20080822
  Receipt Date: 20080811
  Transmission Date: 20090109
  Serious: Yes (Other)
  Sender: FDA-Public Use
  Company Number: US-PFIZER INC-2008062116

PATIENT
  Sex: Female
  Weight: 68 kg

DRUGS (15)
  1. CHANTIX [Suspect]
     Indication: SMOKING CESSATION THERAPY
     Route: 048
     Dates: start: 20080601, end: 20080711
  2. LIPITOR [Suspect]
  3. OXYCODONE HCL [Concomitant]
  4. NORTRIPTYLINE HCL [Concomitant]
  5. PREVACID [Concomitant]
  6. LORAZEPAM [Concomitant]
  7. OXYCONTIN [Concomitant]
  8. ALL OTHER THERAPEUTIC PRODUCTS [Concomitant]
  9. AMITRIPTYLINE HCL [Concomitant]
  10. EFFEXOR [Concomitant]
  11. PERCOCET [Concomitant]
  12. VITAMIN B COMPLEX CAP [Concomitant]
  13. CALCIUM [Concomitant]
  14. VITAMIN TAB [Concomitant]
  15. NEURONTIN [Concomitant]

REACTIONS (4)
  - AMNESIA [None]
  - BLOOD CHOLESTEROL INCREASED [None]
  - OROPHARYNGEAL PAIN [None]
  - PSYCHOTIC DISORDER [None]
